FAERS Safety Report 20730642 (Version 1)
Quarter: 2022Q2

REPORT INFORMATION
  Report Type: Spontaneous
  Country: US (occurrence: US)
  Receive Date: 20220420
  Receipt Date: 20220420
  Transmission Date: 20220721
  Serious: No
  Sender: FDA-Public Use
  Company Number: US-ASTELLAS-2022US013122

PATIENT
  Age: 57 Year
  Sex: Female

DRUGS (4)
  1. LEXISCAN [Suspect]
     Active Substance: REGADENOSON
     Indication: Cardiac stress test
     Dosage: 0.4 MG/5ML, UNKNOWN FREQ. (0.4 MG/5ML)
     Route: 065
     Dates: start: 20220405, end: 20220405
  2. LEXISCAN [Suspect]
     Active Substance: REGADENOSON
     Indication: Cardiac stress test
     Dosage: 0.4 MG/5ML, UNKNOWN FREQ. (0.4 MG/5ML)
     Route: 065
     Dates: start: 20220405, end: 20220405
  3. LEXISCAN [Suspect]
     Active Substance: REGADENOSON
     Indication: Cardiac stress test
     Dosage: 0.4 MG/5ML, UNKNOWN FREQ. (0.4 MG/5ML)
     Route: 065
     Dates: start: 20220405, end: 20220405
  4. LEXISCAN [Suspect]
     Active Substance: REGADENOSON
     Indication: Cardiac stress test
     Dosage: 0.4 MG/5ML, UNKNOWN FREQ. (0.4 MG/5ML)
     Route: 065
     Dates: start: 20220405, end: 20220405

REACTIONS (1)
  - Throat tightness [Recovered/Resolved]

NARRATIVE: CASE EVENT DATE: 20220405
